FAERS Safety Report 25074189 (Version 1)
Quarter: 2025Q1

REPORT INFORMATION
  Report Type: Spontaneous
  Country: US (occurrence: None)
  Receive Date: 20250313
  Receipt Date: 20250313
  Transmission Date: 20250408
  Serious: Yes (Other)
  Sender: FDA-CTU
  Company Number: None

PATIENT
  Age: 36 Year
  Sex: Female
  Weight: 69.3 kg

DRUGS (5)
  1. BACTRIM DS [Suspect]
     Active Substance: SULFAMETHOXAZOLE\TRIMETHOPRIM
     Indication: Klebsiella test positive
     Dosage: OTHER QUANTITY : 20 TABLET(S);?FREQUENCY : TWICE A DAY;?
     Route: 048
  2. ASPIRIN [Concomitant]
     Active Substance: ASPIRIN
  3. BOTOX [Concomitant]
     Active Substance: ONABOTULINUMTOXINA
  4. VITAMIN C [Concomitant]
     Active Substance: ASCORBIC ACID
  5. PROBIOTICS NOS [Concomitant]
     Active Substance: PROBIOTICS NOS

REACTIONS (13)
  - Formication [None]
  - Anxiety [None]
  - Insomnia [None]
  - Dysphagia [None]
  - Hallucination, auditory [None]
  - Intrusive thoughts [None]
  - Self-injurious ideation [None]
  - Derealisation [None]
  - Presyncope [None]
  - Myalgia [None]
  - Arthralgia [None]
  - Vertigo [None]
  - Mental disorder [None]

NARRATIVE: CASE EVENT DATE: 20250312
